FAERS Safety Report 9503277 (Version 1)
Quarter: 2013Q3

REPORT INFORMATION
  Report Type: Report from Study
  Country: DE (occurrence: DE)
  Receive Date: 20130906
  Receipt Date: 20130906
  Transmission Date: 20140515
  Serious: Yes (Other)
  Sender: FDA-Public Use
  Company Number: DE-SANOFI-AVENTIS-2013SA087245

PATIENT
  Age: 70 Year
  Sex: Female
  Weight: 70 kg

DRUGS (6)
  1. MULTAQ [Suspect]
     Indication: ATRIAL FIBRILLATION
     Route: 065
     Dates: start: 20120322
  2. BETA BLOCKING AGENTS [Concomitant]
     Dates: start: 201204
  3. PLATELET AGGREGATION INHIBITORS [Concomitant]
     Indication: PROPHYLAXIS
     Dates: start: 20120803
  4. RAMIPRIL/HYDROCHLOROTHIAZIDE [Concomitant]
  5. AMLODIPINE [Concomitant]
  6. ANTITHROMBOTIC AGENTS [Concomitant]
     Route: 048
     Dates: start: 20120418

REACTIONS (1)
  - Atrial fibrillation [Unknown]
